FAERS Safety Report 6693754-5 (Version None)
Quarter: 2010Q2

REPORT INFORMATION
  Report Type: 
  Country: None (occurrence: None)
  Receive Date: 20100423
  Receipt Date: 20091008
  Transmission Date: 20101027
  Serious: No
  Sender: FDA-Public Use
  Company Number: A0810944A

PATIENT
  Sex: Female

DRUGS (3)
  1. DEXEDRINE [Suspect]
     Dosage: 20MG TWICE PER DAY
     Route: 048
     Dates: start: 20050101
  2. VALIUM [Concomitant]
  3. LISINOPRIL [Concomitant]

REACTIONS (4)
  - AMNESIA [None]
  - BLOOD PRESSURE INCREASED [None]
  - DEPRESSED MOOD [None]
  - INSOMNIA [None]
